FAERS Safety Report 5786968-X (Version None)
Quarter: 2008Q2

REPORT INFORMATION
  Report Type: 
  Country: None (occurrence: None)
  Receive Date: 20080625
  Receipt Date: 20080619
  Transmission Date: 20081010
  Serious: Yes (Hospitalization, Other)
  Sender: FDA-Public Use
  Company Number: CH-WYE-G01382908

PATIENT
  Age: 35 Year
  Sex: Female
  Weight: 58 kg

DRUGS (5)
  1. EFFEXOR [Suspect]
     Indication: DEPRESSION
     Dates: start: 20080316, end: 20080320
  2. EFFEXOR [Suspect]
     Indication: ANXIETY DISORDER
     Dates: start: 20080321, end: 20080403
  3. EFFEXOR [Suspect]
     Dates: start: 20080404
  4. XANAX [Concomitant]
     Dosage: UNKNOWN
  5. TRITTICO [Concomitant]
     Dosage: UNKNOWN

REACTIONS (3)
  - ABORTION SPONTANEOUS [None]
  - DRUG EXPOSURE DURING PREGNANCY [None]
  - UTERINE DISORDER [None]
